FAERS Safety Report 9551817 (Version 1)
Quarter: 2013Q2

REPORT INFORMATION
  Report Type: Spontaneous
  Country: US (occurrence: None)
  Receive Date: 20130627
  Receipt Date: 20130627
  Transmission Date: 20140414
  Serious: No
  Sender: FDA-Public Use
  Company Number: 1000043779

PATIENT
  Sex: Female

DRUGS (2)
  1. LINZESS (LINACLOTIDE) (CAPSULES) [Suspect]
     Indication: IRRITABLE BOWEL SYNDROME
     Dosage: 290 MG, 1 IN 1 D
     Route: 048
     Dates: start: 201212
  2. LINZESS (LINACLOTIDE) (CAPSULES) [Suspect]
     Indication: CONSTIPATION
     Dosage: 290 MG, 1 IN 1 D
     Route: 048
     Dates: start: 201212

REACTIONS (1)
  - Drug ineffective [None]
